FAERS Safety Report 5707114-4 (Version None)
Quarter: 2008Q2

REPORT INFORMATION
  Report Type: 
  Country: None (occurrence: None)
  Receive Date: 20080416
  Receipt Date: 20080407
  Transmission Date: 20081010
  Serious: Yes (Hospitalization)
  Sender: FDA-Public Use
  Company Number: US-ELI_LILLY_AND_COMPANY-US200804001616

PATIENT
  Sex: Female

DRUGS (2)
  1. FORTEO [Suspect]
     Dates: start: 20080101
  2. ANALGESICS [Concomitant]

REACTIONS (7)
  - BLOOD URINE PRESENT [None]
  - DIARRHOEA [None]
  - FAECALOMA [None]
  - GASTROINTESTINAL DISORDER [None]
  - PNEUMONIA [None]
  - PYREXIA [None]
  - SURGERY [None]
